FAERS Safety Report 8326331-0 (Version None)
Quarter: 2012Q2

REPORT INFORMATION
  Report Type: 
  Country: None (occurrence: None)
  Receive Date: 20120501
  Receipt Date: 20120420
  Transmission Date: 20120825
  Serious: Yes (Hospitalization)
  Sender: FDA-Public Use
  Company Number: US-ELI_LILLY_AND_COMPANY-US201204007970

PATIENT
  Age: 60 Year
  Sex: Female

DRUGS (7)
  1. SINGULAIR [Concomitant]
  2. XANAX [Concomitant]
  3. DEXTROAMPHETAMINE [Concomitant]
  4. CYMBALTA [Suspect]
     Indication: DEPRESSION
     Dosage: 30 MG, QD
     Dates: start: 20110401
  5. ACIPHEX [Concomitant]
  6. METOZOLV [Concomitant]
  7. CYMBALTA [Suspect]
     Dosage: 60 MG, QD
     Dates: end: 20111201

REACTIONS (13)
  - ABDOMINAL PAIN UPPER [None]
  - ABDOMINAL PAIN [None]
  - BLOOD UREA INCREASED [None]
  - CHROMATURIA [None]
  - WEIGHT INCREASED [None]
  - ABDOMINAL DISTENSION [None]
  - DYSPEPSIA [None]
  - NAUSEA [None]
  - CONSTIPATION [None]
  - BLOOD BILIRUBIN INCREASED [None]
  - POLYP COLORECTAL [None]
  - CHOLESTASIS [None]
  - PRURITUS [None]
